FAERS Safety Report 6369977-1 (Version None)
Quarter: 2009Q3

REPORT INFORMATION
  Report Type: 
  Country: None (occurrence: None)
  Receive Date: 20090923
  Receipt Date: 20070509
  Transmission Date: 20100115
  Serious: Yes (Hospitalization)
  Sender: FDA-Public Use
  Company Number: US-ASTRAZENECA-2006UW07695

PATIENT
  Age: 14770 Day
  Sex: Female
  Weight: 103.9 kg

DRUGS (12)
  1. SEROQUEL [Suspect]
     Indication: DEPRESSION
     Dosage: 100 MG TO 500 MG
     Route: 048
     Dates: start: 19970101, end: 20040101
  2. SEROQUEL [Suspect]
     Dosage: 100-300 MG
     Route: 048
     Dates: start: 20000204
  3. HALDOL [Concomitant]
  4. RISPERDAL [Concomitant]
  5. OLANZAPINE [Concomitant]
  6. CLARITIN [Concomitant]
     Route: 048
     Dates: start: 19980903
  7. TRIAMCINOLONE [Concomitant]
     Dates: start: 19980903
  8. CIPRO [Concomitant]
     Route: 048
     Dates: start: 19980903
  9. CEFTIN [Concomitant]
     Route: 048
     Dates: start: 19981030
  10. PAXIL [Concomitant]
     Route: 048
     Dates: start: 19990211
  11. TRAZODONE [Concomitant]
     Route: 048
     Dates: start: 19990211
  12. ZOLOFT [Concomitant]
     Route: 048
     Dates: start: 19990308

REACTIONS (3)
  - DEPRESSION [None]
  - MAJOR DEPRESSION [None]
  - TYPE 2 DIABETES MELLITUS [None]
